FAERS Safety Report 8090789-5 (Version None)
Quarter: 2012Q1

REPORT INFORMATION
  Report Type: 
  Country: None (occurrence: None)
  Receive Date: 20120125
  Receipt Date: 20120118
  Transmission Date: 20120608
  Serious: Yes (Disabling)
  Sender: FDA-Public Use
  Company Number: OSCN-NO-1005S-0132

PATIENT
  Age: 41 Year
  Sex: Female

DRUGS (32)
  1. MAGNEVIST [Suspect]
     Indication: PRODUCT USED FOR UNKNOWN INDICATION
     Dosage: NR, SINGLE DOSE, INTRAVENOUS
     Route: 042
     Dates: start: 20071001, end: 20071001
  2. SEVELAMER (RENAGEL) (SEVELAMER) [Concomitant]
  3. CINACALCET (MIMPARA) (CINACALCET) [Concomitant]
  4. METOCLOPRAMIDE (EMPERAL) (METOCLPRAMIDE HYDROCHLORIDE) [Concomitant]
  5. VITAMIN B COMPLEX, PLAIN 9B-COMBIN STERK) (B-KOMPLEX) [Concomitant]
  6. SACCHARATED IRON OXIDE (VENOFER) (SACCHARATED IRON OXIDE) [Concomitant]
  7. TINZAPARIN (INNOHEP0 (HEPARIN-FRACTION, SODIUM SALT) [Concomitant]
  8. PARACETAMOL (PINEX) (PARACETAMOL) [Concomitant]
  9. METOCLOPRAMIDE (PRIMPERAN) (METOCLOPRAMIDE) [Concomitant]
  10. RAMIPRIL (TRIATEC) (RAMIPRIL) [Concomitant]
  11. STOLPIDEM (STILNOCT) (ZOLPIDEM TARTRATE) [Concomitant]
  12. LABETALOL (TRANDATE) (LABETALOL HYDROCHLORIDE) [Concomitant]
  13. METOPROLOL (SELO-ZOK) (METOPROLOL SUCCINATE) [Concomitant]
  14. CLOPIDOGREL (PLAVIX) (CLOPIDOGREL) [Concomitant]
  15. VANCOMYCIN (VANCOMYCIN ^HOSPIRA^) (VANCOMYCIN) [Concomitant]
  16. CODEINE SULFATE [Concomitant]
  17. ATORVASTATIN [Concomitant]
  18. CIPROFLOXACIN [Concomitant]
  19. TRAMADOL (TRADOLAN) (TRAMADOL HYDROCHLORIDE) [Concomitant]
  20. OMNISCAN [Suspect]
     Indication: TRANSPLANT EVALUATION
     Dosage: 20 ML, SINGLE DOSE, INTRAVENOUS
     Route: 042
     Dates: start: 20060313, end: 20060313
  21. GADOVIST (GADOBUTROL) [Suspect]
     Indication: ARTERIOVENOUS FISTULA
     Dosage: NR, SINGLE DOSE, INTRAVENOUS
     Route: 042
     Dates: start: 20090901, end: 20090901
  22. PARICALCITOL (ZEMPLAR) (PARICALCITOL) [Concomitant]
  23. WARFARIN (MAREVAN) (WARFARIN SODIUM) [Concomitant]
  24. KETOBEMIDONE (KETOGAN) (KETOGIN) [Concomitant]
  25. EXCL. PSYCHOLEPTICS (FORTAMOL) (GALENIC/PARACETAMOL/CODEINE/) [Concomitant]
  26. FOLIC ACID [Concomitant]
  27. ATORVASTATIN [Concomitant]
  28. LANTHANUM CARBONATE (FOSRENOL) (LANTHANUM CARBONATE) [Concomitant]
  29. DARBEPOETIN ALFA (ARANESP) (DARBEPOETIN ALFA) [Concomitant]
  30. GLYCERYL TRINITRATE (NITROLINGUAL) (GLYCERYL TRINITRATE) [Concomitant]
  31. MELATONIN (CIRCADIN) (MELATONIN) [Concomitant]
  32. VITAMIN C (NYCOPLUS C) (ASCORBIC ACID) [Concomitant]

REACTIONS (1)
  - NEPHROGENIC SYSTEMIC FIBROSIS [None]
